FAERS Safety Report 17880895 (Version 2)
Quarter: 2020Q2

REPORT INFORMATION
  Report Type: Spontaneous
  Country: CN (occurrence: CN)
  Receive Date: 20200610
  Receipt Date: 20200616
  Transmission Date: 20200714
  Serious: Yes (Other)
  Sender: FDA-Public Use
  Company Number: CN-GLAXOSMITHKLINE-CN2020APC092993

PATIENT

DRUGS (2)
  1. SERETIDE [Suspect]
     Active Substance: FLUTICASONE PROPIONATE\SALMETEROL XINAFOATE
     Dosage: 1 DF 50/250UG
  2. SERETIDE [Suspect]
     Active Substance: FLUTICASONE PROPIONATE\SALMETEROL XINAFOATE
     Indication: ASTHMA
     Dosage: 60 DF 60INHALATION 50/100UG

REACTIONS (15)
  - Weight decreased [Unknown]
  - Eye oedema [Recovering/Resolving]
  - Visual acuity reduced [Not Recovered/Not Resolved]
  - Ocular discomfort [Unknown]
  - Dyspnoea [Recovered/Resolved]
  - Hypersensitivity [Unknown]
  - Eyelid oedema [Unknown]
  - Inappropriate schedule of product administration [Unknown]
  - Exophthalmos [Unknown]
  - Dizziness [Not Recovered/Not Resolved]
  - Headache [Not Recovered/Not Resolved]
  - Sensory disturbance [Unknown]
  - Somnolence [Unknown]
  - Tinnitus [Unknown]
  - Head discomfort [Unknown]
